FAERS Safety Report 8902204 (Version 1)
Quarter: 2012Q4

REPORT INFORMATION
  Report Type: 
  Country: AR (occurrence: AR)
  Receive Date: 20121112
  Receipt Date: 20121112
  Transmission Date: 20130627
  Serious: Yes (Other)
  Sender: FDA-Public Use
  Company Number: PHHY2012AR041745

PATIENT
  Sex: Male

DRUGS (1)
  1. ONBREZ [Suspect]
     Indication: CHRONIC OBSTRUCTIVE PULMONARY DISEASE
     Dosage: 300 ug, daily
     Dates: start: 201110

REACTIONS (3)
  - Intervertebral disc protrusion [Recovering/Resolving]
  - Accident [Recovering/Resolving]
  - Bronchitis [Recovering/Resolving]
